FAERS Safety Report 10264417 (Version 1)
Quarter: 2014Q2

REPORT INFORMATION
  Report Type: Spontaneous
  Country: US (occurrence: None)
  Receive Date: 20140623
  Receipt Date: 20140623
  Transmission Date: 20141212
  Serious: Yes (Hospitalization, Disabling)
  Sender: FDA-Public Use
  Company Number: None

PATIENT
  Age: 51 Year
  Sex: Female
  Weight: 72.58 kg

DRUGS (1)
  1. QYSMIA [Suspect]
     Indication: WEIGHT DECREASED
     Dosage: 2 PILLS TWICE DAILY TAKEN BY MOUTH
     Route: 048
     Dates: start: 20130917, end: 20130926

REACTIONS (12)
  - Abasia [None]
  - Speech disorder [None]
  - Blindness unilateral [None]
  - Angle closure glaucoma [None]
  - Heart rate decreased [None]
  - Cataract operation [None]
  - Lacrimation increased [None]
  - Pain [None]
  - Discomfort [None]
  - Photosensitivity reaction [None]
  - Eye pain [None]
  - Impaired work ability [None]
